FAERS Safety Report 9090922 (Version 1)
Quarter: 2013Q1

REPORT INFORMATION
  Report Type: Spontaneous
  Country: NL (occurrence: NL)
  Receive Date: 20130131
  Receipt Date: 20130131
  Transmission Date: 20140127
  Serious: Yes (Death)
  Sender: FDA-Public Use
  Company Number: NL-TEVA-380055ISR

PATIENT
  Age: 77 Year
  Sex: Female

DRUGS (4)
  1. METHOTREXAAT [Suspect]
     Indication: RHEUMATOID ARTHRITIS
     Route: 048
     Dates: start: 200204, end: 201202
  2. INFLIXIMAB [Interacting]
     Indication: RHEUMATOID ARTHRITIS
     Route: 042
     Dates: start: 20061129, end: 20120213
  3. ETANERCEPT [Interacting]
     Indication: RHEUMATOID ARTHRITIS
     Route: 058
     Dates: start: 20111219
  4. THYRAX DUOTAB TABLET 0.025MG [Concomitant]
     Dosage: 1 KEER PER DAG 1 STUK(S)
     Route: 048
     Dates: start: 2007

REACTIONS (1)
  - B-cell lymphoma [Fatal]
